FAERS Safety Report 6924465-6 (Version None)
Quarter: 2010Q3

REPORT INFORMATION
  Report Type: 
  Country: None (occurrence: None)
  Receive Date: 20100811
  Receipt Date: 20100805
  Transmission Date: 20110219
  Serious: Yes (Other)
  Sender: FDA-Public Use
  Company Number: TRP_07175_2010

PATIENT
  Sex: Female

DRUGS (2)
  1. RIBAVIRIN [Suspect]
     Indication: PRODUCT USED FOR UNKNOWN INDICATION
     Dosage: (DF)
  2. PEGASYS [Suspect]
     Indication: PRODUCT USED FOR UNKNOWN INDICATION
     Dosage: (DF)

REACTIONS (7)
  - ABDOMINAL DISTENSION [None]
  - BRONCHITIS [None]
  - HEADACHE [None]
  - INJECTION SITE INJURY [None]
  - INJECTION SITE PAIN [None]
  - PYREXIA [None]
  - WHITE BLOOD CELL COUNT DECREASED [None]
